FAERS Safety Report 6305097-X (Version None)
Quarter: 2009Q3

REPORT INFORMATION
  Report Type: 
  Country: None (occurrence: None)
  Receive Date: 20090811
  Receipt Date: 20090731
  Transmission Date: 20100115
  Serious: Yes (Death)
  Sender: FDA-Public Use
  Company Number: KR-PFIZER INC-2009250333

PATIENT
  Age: 61 Year

DRUGS (5)
  1. VORICONAZOLE [Suspect]
     Indication: ASPERGILLOSIS
     Dosage: 360 MG, 2X/DAY
     Route: 042
     Dates: start: 20081215, end: 20081215
  2. MEROPENEM [Concomitant]
     Dates: start: 20081128, end: 20081227
  3. VANCOMYCIN [Concomitant]
     Dates: start: 20081128, end: 20081227
  4. LENOGRASTIM [Concomitant]
     Dates: start: 20081103, end: 20081227
  5. REPAGLINIDE [Concomitant]
     Route: 048
     Dates: start: 20081103, end: 20081220

REACTIONS (2)
  - ENTEROCOCCAL INFECTION [None]
  - RENAL FAILURE ACUTE [None]
